FAERS Safety Report 8824972 (Version 1)
Quarter: 2012Q4

REPORT INFORMATION
  Report Type: 
  Country: US (occurrence: US)
  Receive Date: 20121004
  Receipt Date: 20121004
  Transmission Date: 20130627
  Serious: No
  Sender: FDA-Public Use
  Company Number: US-PFIZER INC-2012245202

PATIENT
  Sex: Male

DRUGS (2)
  1. LYRICA [Suspect]
     Indication: NEURALGIA
     Dosage: 50 mg, 2x/day
     Dates: start: 201209
  2. LYRICA [Suspect]
     Dosage: 100 mg, 2x/day

REACTIONS (4)
  - Drug ineffective [Unknown]
  - Dizziness [Not Recovered/Not Resolved]
  - Irritability [Not Recovered/Not Resolved]
  - Malaise [Not Recovered/Not Resolved]
